FAERS Safety Report 23430532 (Version 1)
Quarter: 2024Q1

REPORT INFORMATION
  Report Type: Report from Study
  Country: CA (occurrence: CA)
  Receive Date: 20240123
  Receipt Date: 20240123
  Transmission Date: 20240409
  Serious: Yes (Other)
  Sender: FDA-Public Use
  Company Number: CA-BAYER-2023A176512

PATIENT
  Sex: Female

DRUGS (1)
  1. EYLEA [Suspect]
     Active Substance: AFLIBERCEPT
     Indication: Age-related macular degeneration
     Dosage: 1 DF, ONCE , SOLUTION FOR INJECTION, 40MG/ML
     Dates: start: 20231206

REACTIONS (6)
  - Eye injury [Not Recovered/Not Resolved]
  - Eye haemorrhage [Recovering/Resolving]
  - Visual impairment [Unknown]
  - Ocular discomfort [Unknown]
  - Injection site pain [Unknown]
  - Eye pain [Unknown]

NARRATIVE: CASE EVENT DATE: 20231206
